FAERS Safety Report 24574383 (Version 1)
Quarter: 2024Q4

REPORT INFORMATION
  Report Type: Spontaneous
  Country: US (occurrence: None)
  Receive Date: 20241104
  Receipt Date: 20241104
  Transmission Date: 20250115
  Serious: Yes (Other)
  Sender: NATCO PHARMA
  Company Number: US-NATCOUSA-2024-NATCOUSA-000239

PATIENT
  Age: 39 Year
  Sex: Female

DRUGS (4)
  1. IMATINIB [Suspect]
     Active Substance: IMATINIB
     Indication: Chronic myeloid leukaemia
     Dosage: 400 MG EVERY OTHER DAY FOR?THE FIRST 2 MONTHS THEN INCREASED TO 400 MG DAILY
     Route: 065
  2. LISINOPRIL [Suspect]
     Active Substance: LISINOPRIL
     Indication: Chronic myeloid leukaemia
     Route: 065
  3. METOPROLOL [Suspect]
     Active Substance: METOPROLOL
     Indication: Chronic myeloid leukaemia
     Route: 065
  4. IMATINIB [Suspect]
     Active Substance: IMATINIB
     Indication: Chronic myeloid leukaemia
     Dosage: 400 MG DAILY
     Route: 065

REACTIONS (1)
  - Chronic cutaneous lupus erythematosus [Unknown]
